FAERS Safety Report 24526641 (Version 1)
Quarter: 2024Q4

REPORT INFORMATION
  Report Type: Report from Study
  Country: US (occurrence: US)
  Receive Date: 20241021
  Receipt Date: 20241021
  Transmission Date: 20250115
  Serious: No
  Sender: ROCHE
  Company Number: US-ROCHE-3428391

PATIENT
  Age: 43 Year
  Sex: Female

DRUGS (2)
  1. ZELBORAF [Suspect]
     Active Substance: VEMURAFENIB
     Indication: Brain neoplasm malignant
     Dosage: TAKE 4 TABLET(S) BY MOUTH (960MG) EVERY 12 HOURS
     Route: 048
  2. COTELLIC [Suspect]
     Active Substance: COBIMETINIB
     Indication: Product used for unknown indication
     Dosage: TAKE 3 TABLET(S) BY MOUTH (60MG) EVERY DAY ON DAYS 1-21 EVERY 28 DAY(S) CYCLE
     Route: 048

REACTIONS (3)
  - Seizure [Unknown]
  - Off label use [Unknown]
  - Bell^s palsy [Unknown]
